FAERS Safety Report 4675045-7 (Version None)
Quarter: 2005Q2

REPORT INFORMATION
  Report Type: 
  Country: None (occurrence: None)
  Receive Date: 20050526
  Receipt Date: 20050510
  Transmission Date: 20051028
  Serious: Yes (Hospitalization, Congenital Anomaly)
  Sender: FDA-Public Use
  Company Number: 310003L05USA

PATIENT

DRUGS (6)
  1. RECOMBINANT HUMAN FOLLICLE STIMULATING HORMONE (FOLLITROPIN ALFA) [Suspect]
     Indication: IN VITRO FERTILISATION
     Dosage: I.U
     Route: 015
  2. HUMAN MENOPAUSAL GONADOTROPIN (MEMOTHROPHIN) [Suspect]
     Indication: IN VITRO FERTILISATION
     Dosage: I.U.
     Route: 015
  3. CETRORELIX (CETRORELIX) [Suspect]
     Indication: IN VITRO FERTILISATION
     Dosage: 0.25 MG, 1 IN 1 DAYS, I.U.
     Route: 015
  4. HUMAN CHORIONIC GONADOTROPIN (CHORIONIC GONADOTROPHIN) [Suspect]
     Indication: IN VITRO FERTILISATION
     Dosage: I.U.
     Route: 015
  5. OSTRADIOL (ESTRADIOL) [Suspect]
     Indication: LUTEAL PHASE DEFICIENCY
     Dosage: 4 G, 1  IN 1 DAYS, I.U.
     Route: 015
  6. PROGESTERONE IN OIL (PROGESTERONE) [Suspect]
     Indication: LUTEAL PHASE DEFICIENCY
     Dosage: 50 MG, 1 IN 1 DAYS, I.U.
     Route: 015

REACTIONS (5)
  - AMNIOCENTESIS ABNORMAL [None]
  - CAESAREAN SECTION [None]
  - CONGENITAL ANOMALY [None]
  - DRUG EXPOSURE DURING PREGNANCY [None]
  - INGUINAL HERNIA [None]
